FAERS Safety Report 8423028-3 (Version None)
Quarter: 2012Q2

REPORT INFORMATION
  Report Type: 
  Country: None (occurrence: None)
  Receive Date: 20120608
  Receipt Date: 20120524
  Transmission Date: 20120825
  Serious: Yes (Other)
  Sender: FDA-Public Use
  Company Number: PHHY2012KR048867

PATIENT
  Sex: Female
  Weight: 2.041 kg

DRUGS (1)
  1. TEGRETOL [Suspect]

REACTIONS (3)
  - FOETAL EXPOSURE DURING PREGNANCY [None]
  - LOW BIRTH WEIGHT BABY [None]
  - FOETAL GROWTH RESTRICTION [None]
